FAERS Safety Report 4814916-5 (Version None)
Quarter: 2005Q4

REPORT INFORMATION
  Report Type: 
  Country: None (occurrence: None)
  Receive Date: 20051028
  Receipt Date: 20051020
  Transmission Date: 20060501
  Serious: Yes (Hospitalization, Other)
  Sender: FDA-Public Use
  Company Number: PHFR2005IE03483

PATIENT
  Age: 31 Year
  Sex: Male

DRUGS (1)
  1. CLOZARIL [Suspect]
     Indication: SCHIZOPHRENIA
     Dosage: UNK, UNK
     Route: 048
     Dates: start: 20050627

REACTIONS (4)
  - CIRCULATORY COLLAPSE [None]
  - DIABETES MELLITUS INSULIN-DEPENDENT [None]
  - OVERWEIGHT [None]
  - THIRST [None]
